FAERS Safety Report 15612002 (Version 1)
Quarter: 2018Q4

REPORT INFORMATION
  Report Type: Spontaneous
  Country: CA (occurrence: CA)
  Receive Date: 20181113
  Receipt Date: 20181113
  Transmission Date: 20190205
  Serious: Yes (Other)
  Sender: FDA-Public Use
  Company Number: CA-GLAXOSMITHKLINE-CA2018GSK205057

PATIENT
  Age: 55 Year
  Sex: Female

DRUGS (2)
  1. LAMOTRIGINE. [Suspect]
     Active Substance: LAMOTRIGINE
     Indication: SEIZURE PROPHYLAXIS
     Dosage: 100 MG, BID
  2. ALPRAZOLAM. [Suspect]
     Active Substance: ALPRAZOLAM
     Indication: SEIZURE PROPHYLAXIS
     Dosage: 0.25 MG, QD

REACTIONS (2)
  - Seizure [Recovered/Resolved]
  - Product substitution issue [Unknown]
